FAERS Safety Report 13960741 (Version 2)
Quarter: 2017Q3

REPORT INFORMATION
  Report Type: Spontaneous
  Country: US (occurrence: US)
  Receive Date: 20170912
  Receipt Date: 20170921
  Transmission Date: 20171128
  Serious: No
  Sender: FDA-Public Use
  Company Number: US-BAYER-2017-174458

PATIENT
  Age: 78 Year
  Sex: Male
  Weight: 76 kg

DRUGS (4)
  1. GAS-X [Concomitant]
     Active Substance: DIMETHICONE
  2. MIRALAX [Suspect]
     Active Substance: POLYETHYLENE GLYCOL 3350
     Indication: GASTROINTESTINAL DISORDER
  3. CENA-K [Concomitant]
  4. MIRALAX [Suspect]
     Active Substance: POLYETHYLENE GLYCOL 3350
     Indication: GASTROINTESTINAL DISORDER
     Dosage: UNK
     Route: 048
     Dates: start: 2016, end: 20170911

REACTIONS (2)
  - Incorrect drug administration duration [Unknown]
  - Dysgeusia [Unknown]

NARRATIVE: CASE EVENT DATE: 2016
